FAERS Safety Report 12348346 (Version 2)
Quarter: 2016Q2

REPORT INFORMATION
  Report Type: Spontaneous
  Country: US (occurrence: US)
  Receive Date: 20160509
  Receipt Date: 20160615
  Transmission Date: 20160815
  Serious: Yes (Life-Threatening, Hospitalization)
  Sender: FDA-Public Use
  Company Number: US-SA-2016SA088874

PATIENT
  Age: 42 Year
  Sex: Male

DRUGS (16)
  1. LANTUS SOLOSTAR [Suspect]
     Active Substance: INSULIN GLARGINE
     Indication: TYPE 1 DIABETES MELLITUS
     Dosage: DOSE IS 16U-18U QAM + 10U-12U QHS
     Route: 065
  2. LANTUS [Concomitant]
     Active Substance: INSULIN GLARGINE
     Indication: TYPE 1 DIABETES MELLITUS
     Dates: start: 1999
  3. LANTUS SOLOSTAR [Suspect]
     Active Substance: INSULIN GLARGINE
     Indication: TYPE 1 DIABETES MELLITUS
     Dosage: DOSE IS 16U-18U QAM + 10U-12U QHS
     Route: 065
     Dates: start: 19990109, end: 201602
  4. ATORVASTATIN [Concomitant]
     Active Substance: ATORVASTATIN
     Dosage: STRENGTH: 40 MG
  5. VITAMIN D3 [Concomitant]
     Active Substance: CHOLECALCIFEROL
     Dosage: STRENGTH: 2000 UNITS
  6. RISPERIDONE. [Concomitant]
     Active Substance: RISPERIDONE
     Dosage: STERNGTH: 1 MG
  7. OMEPRAZOLE. [Concomitant]
     Active Substance: OMEPRAZOLE
     Dosage: STRENGTH: 20 MG
  8. ASPIRIN. [Concomitant]
     Active Substance: ASPIRIN
     Dosage: STRENGTH: 81MG
  9. SOLOSTAR [Concomitant]
     Active Substance: DEVICE
     Indication: TYPE 1 DIABETES MELLITUS
  10. OPTICLICK [Concomitant]
     Active Substance: DEVICE
     Dates: start: 1999
  11. TRAZODONE [Concomitant]
     Active Substance: TRAZODONE HYDROCHLORIDE
     Indication: SLEEP DISORDER
     Dosage: STRENGTH: 50 MG
  12. XARELTO [Concomitant]
     Active Substance: RIVAROXABAN
     Dosage: STRENGTH: 20 MG
  13. METOPROLOL. [Concomitant]
     Active Substance: METOPROLOL
     Dosage: 1-2 TIMES
  14. HUMALOG [Concomitant]
     Active Substance: INSULIN LISPRO
  15. DIVALPROEX SODIUM. [Concomitant]
     Active Substance: DIVALPROEX SODIUM
     Dosage: DELAYED RELEASE
  16. MINERALS NOS/VITAMINS NOS [Concomitant]

REACTIONS (4)
  - Incorrect product storage [Unknown]
  - Myocardial infarction [Unknown]
  - Blood glucose abnormal [Unknown]
  - Product use issue [Unknown]

NARRATIVE: CASE EVENT DATE: 1999
